FAERS Safety Report 17362050 (Version 4)
Quarter: 2020Q2

REPORT INFORMATION
  Report Type: Report from Study
  Country: US (occurrence: US)
  Receive Date: 20200203
  Receipt Date: 20200523
  Transmission Date: 20200713
  Serious: Yes (Other)
  Sender: FDA-Public Use
  Company Number: NVSC2020US022211

PATIENT
  Sex: Female

DRUGS (3)
  1. PIQRAY [Suspect]
     Active Substance: ALPELISIB
     Indication: PRODUCT USED FOR UNKNOWN INDICATION
     Dosage: UNK
     Route: 048
  2. PIQRAY [Suspect]
     Active Substance: ALPELISIB
     Dosage: UNK
     Route: 048
  3. PIQRAY [Suspect]
     Active Substance: ALPELISIB
     Dosage: UNK
     Route: 048

REACTIONS (14)
  - Neuropathy peripheral [Unknown]
  - Skin exfoliation [Unknown]
  - Fatigue [Unknown]
  - Asthenia [Unknown]
  - Flatulence [Unknown]
  - Positron emission tomogram abnormal [Unknown]
  - Alopecia [Unknown]
  - Nail disorder [Unknown]
  - Dairy intolerance [Unknown]
  - Dehydration [Unknown]
  - Diarrhoea [Unknown]
  - Food intolerance [Unknown]
  - Thirst [Unknown]
  - Lymphoedema [Unknown]
